FAERS Safety Report 13376710 (Version 2)
Quarter: 2017Q2

REPORT INFORMATION
  Report Type: Spontaneous
  Country: US (occurrence: US)
  Receive Date: 20170328
  Receipt Date: 20170424
  Transmission Date: 20170830
  Serious: Yes (Death, Other)
  Sender: FDA-Public Use
  Company Number: US-NAPPMUNDI-USA-2017-0137431

PATIENT
  Age: 11 Month
  Sex: Male

DRUGS (1)
  1. BUPRENORPHINE (SIMILAR TO NDA 21-306) [Suspect]
     Active Substance: BUPRENORPHINE
     Indication: PRODUCT USED FOR UNKNOWN INDICATION
     Route: 065

REACTIONS (5)
  - Drug administered to patient of inappropriate age [Unknown]
  - Vomiting [Unknown]
  - Brain oedema [Unknown]
  - Skull fracture [Fatal]
  - Injury [Fatal]

NARRATIVE: CASE EVENT DATE: 2015
